FAERS Safety Report 7089686-3 (Version None)
Quarter: 2010Q4

REPORT INFORMATION
  Report Type: 
  Country: None (occurrence: None)
  Receive Date: 20101108
  Receipt Date: 20100106
  Transmission Date: 20110411
  Serious: No
  Sender: FDA-Public Use
  Company Number: US-ABBOTT-10P-163-0618534-00

PATIENT
  Sex: Female

DRUGS (2)
  1. TRICOR [Suspect]
     Indication: BLOOD CHOLESTEROL INCREASED
     Dates: start: 20060101
  2. LEVOTHYROXINE [Concomitant]
     Indication: AUTOIMMUNE DISORDER
     Dosage: UNKNOWN

REACTIONS (5)
  - ABDOMINAL PAIN [None]
  - BALANCE DISORDER [None]
  - BLOOD AMYLASE INCREASED [None]
  - FATIGUE [None]
  - LIPASE INCREASED [None]
